FAERS Safety Report 24219241 (Version 2)
Quarter: 2024Q3

REPORT INFORMATION
  Report Type: Spontaneous
  Country: US (occurrence: US)
  Receive Date: 20240816
  Receipt Date: 20240822
  Transmission Date: 20241016
  Serious: Yes (Hospitalization)
  Sender: BRISTOL MYERS SQUIBB
  Company Number: US-BRISTOL-MYERS SQUIBB COMPANY-2024-129843

PATIENT
  Age: 84 Year
  Sex: Male
  Weight: 70.9 kg

DRUGS (4)
  1. APIXABAN [Suspect]
     Active Substance: APIXABAN
     Indication: Atrial flutter
     Dates: end: 202408
  2. APIXABAN [Suspect]
     Active Substance: APIXABAN
     Dates: start: 20240812
  3. TISOTUMAB VEDOTIN [Suspect]
     Active Substance: TISOTUMAB VEDOTIN
     Indication: Squamous cell carcinoma of head and neck
     Dosage: ON DAYS 1,15, AND 29 OF A 6-WEEK CYCLE (Q2W)
     Route: 042
     Dates: start: 20240729, end: 20240729
  4. PEMBROLIZUMAB [Suspect]
     Active Substance: PEMBROLIZUMAB
     Indication: Squamous cell carcinoma of head and neck
     Route: 042
     Dates: start: 20240729, end: 20240729

REACTIONS (2)
  - Haemorrhoidal haemorrhage [Recovered/Resolved]
  - Off label use [Unknown]

NARRATIVE: CASE EVENT DATE: 20240806
